FAERS Safety Report 16302582 (Version 1)
Quarter: 2019Q2

REPORT INFORMATION
  Report Type: Spontaneous
  Country: US (occurrence: US)
  Receive Date: 20190513
  Receipt Date: 20190513
  Transmission Date: 20190711
  Serious: Yes (Hospitalization, Other)
  Sender: FDA-Public Use
  Company Number: US-JNJFOC-20190509716

PATIENT
  Age: 18 Year
  Sex: Female

DRUGS (2)
  1. CETIRIZINE [Suspect]
     Active Substance: CETIRIZINE HYDROCHLORIDE
     Indication: ABDOMINAL PAIN
     Dosage: INGESTION OF 10-16 TABLETS OF CETIRIZINE (10MG EACH)
     Route: 048
  2. CETIRIZINE [Suspect]
     Active Substance: CETIRIZINE HYDROCHLORIDE
     Route: 048

REACTIONS (4)
  - Intentional overdose [Unknown]
  - Product use in unapproved indication [Unknown]
  - Cyanosis central [Recovering/Resolving]
  - Methaemoglobinaemia [Recovering/Resolving]
